FAERS Safety Report 11566752 (Version 1)
Quarter: 2015Q3

REPORT INFORMATION
  Report Type: Spontaneous
  Country: IT (occurrence: IT)
  Receive Date: 20150929
  Receipt Date: 20150929
  Transmission Date: 20151125
  Serious: Yes (Hospitalization)
  Sender: FDA-Public Use
  Company Number: IT-SUN PHARMACEUTICAL INDUSTRIES LTD-12SUNBA11P

PATIENT
  Age: 10 Year
  Sex: Female

DRUGS (1)
  1. BACLOFEN. [Suspect]
     Active Substance: BACLOFEN
     Indication: QUADRIPLEGIA
     Dosage: 211 MCG, QD
     Route: 037

REACTIONS (3)
  - Dyskinesia [Recovered/Resolved]
  - Drug withdrawal syndrome [Recovered/Resolved]
  - Dystonia [Recovered/Resolved]
